FAERS Safety Report 6356533-4 (Version None)
Quarter: 2009Q3

REPORT INFORMATION
  Report Type: 
  Country: None (occurrence: None)
  Receive Date: 20090915
  Receipt Date: 20090909
  Transmission Date: 20100115
  Serious: Yes (Hospitalization)
  Sender: FDA-Public Use
  Company Number: FR-AVENTIS-200913362FR

PATIENT
  Age: 30 Year
  Sex: Male

DRUGS (5)
  1. RIFATER [Suspect]
     Indication: TUBERCULOSIS
     Route: 048
     Dates: start: 20090515, end: 20090605
  2. ORBENIN CAP [Suspect]
     Route: 048
     Dates: start: 20090520, end: 20090604
  3. BACTRIM [Suspect]
     Route: 048
     Dates: start: 20090520
  4. MYAMBUTOL [Suspect]
     Indication: TUBERCULOSIS
     Route: 048
     Dates: start: 20090515
  5. DAFALGAN                           /00020001/ [Suspect]
     Route: 048
     Dates: start: 20090301

REACTIONS (6)
  - COUGH [None]
  - HEADACHE [None]
  - INFLUENZA [None]
  - PYREXIA [None]
  - RASH GENERALISED [None]
  - TOXIC SKIN ERUPTION [None]
